FAERS Safety Report 5983970-X (Version None)
Quarter: 2008Q4

REPORT INFORMATION
  Report Type: 
  Country: None (occurrence: None)
  Receive Date: 20081208
  Receipt Date: 20081201
  Transmission Date: 20090506
  Serious: Yes (Other)
  Sender: FDA-Public Use
  Company Number: US-ASTRAZENECA-2008UW26740

PATIENT
  Age: 62 Year
  Sex: Female

DRUGS (7)
  1. CRESTOR [Suspect]
     Route: 048
  2. ALLEGRA [Concomitant]
  3. VIT B12 [Concomitant]
     Dosage: 500MG
  4. COQ10 [Concomitant]
     Dosage: 75MG
  5. ZINC [Concomitant]
  6. ALBUTEROL [Concomitant]
  7. HYDROCHLOROTHIAZIDE [Concomitant]
     Dosage: 12.5MG

REACTIONS (4)
  - INFLUENZA [None]
  - MUSCLE SPASMS [None]
  - PNEUMONIA PRIMARY ATYPICAL [None]
  - SINUSITIS [None]
